FAERS Safety Report 10596282 (Version 2)
Quarter: 2014Q4

REPORT INFORMATION
  Report Type: Report from Study
  Country: US (occurrence: US)
  Receive Date: 20141120
  Receipt Date: 20141126
  Transmission Date: 20150529
  Serious: Yes (Other)
  Sender: FDA-Public Use
  Company Number: US-BAXTER-2014BAX068463

PATIENT
  Sex: Female

DRUGS (4)
  1. SUPRAX [Concomitant]
     Active Substance: CEFIXIME
     Indication: ADVERSE EVENT
     Route: 048
     Dates: start: 201410, end: 201410
  2. GAMMAGARD LIQUID [Suspect]
     Active Substance: HUMAN IMMUNOGLOBULIN G
     Indication: PRIMARY IMMUNODEFICIENCY SYNDROME
     Route: 058
     Dates: start: 201407, end: 201411
  3. SUPRAX [Concomitant]
     Active Substance: CEFIXIME
     Route: 048
     Dates: start: 201411, end: 201411
  4. MOXIFLOXACIN [Concomitant]
     Active Substance: MOXIFLOXACIN
     Indication: ADVERSE EVENT
     Route: 048
     Dates: start: 201411, end: 201411

REACTIONS (1)
  - Treatment failure [Unknown]
